FAERS Safety Report 22265841 (Version 2)
Quarter: 2023Q2

REPORT INFORMATION
  Report Type: Other
  Country: HR (occurrence: None)
  Receive Date: 20230428
  Receipt Date: 20230518
  Transmission Date: 20230721
  Serious: Yes (Hospitalization, Other)
  Sender: FDA-Public Use
  Company Number: None

PATIENT
  Age: 31 Year
  Sex: Female

DRUGS (52)
  1. LEVOTHYROXINE SODIUM [Suspect]
     Active Substance: LEVOTHYROXINE SODIUM
     Indication: Pain
     Route: 065
     Dates: start: 200703
  2. LEVOTHYROXINE SODIUM [Suspect]
     Active Substance: LEVOTHYROXINE SODIUM
     Indication: Quadriparesis
     Route: 065
     Dates: start: 200904
  3. LEVOTHYROXINE SODIUM [Suspect]
     Active Substance: LEVOTHYROXINE SODIUM
     Route: 065
     Dates: start: 200709
  4. LEVOTHYROXINE SODIUM [Suspect]
     Active Substance: LEVOTHYROXINE SODIUM
     Route: 065
     Dates: start: 200703
  5. LEVOTHYROXINE SODIUM [Suspect]
     Active Substance: LEVOTHYROXINE SODIUM
     Route: 065
     Dates: start: 201003
  6. LEVOTHYROXINE SODIUM [Suspect]
     Active Substance: LEVOTHYROXINE SODIUM
     Route: 065
     Dates: start: 200805
  7. LEVOTHYROXINE SODIUM [Suspect]
     Active Substance: LEVOTHYROXINE SODIUM
     Dosage: 50 UG, UNK
     Route: 065
  8. ALPRAZOLAM [Suspect]
     Active Substance: ALPRAZOLAM
     Indication: Pain
     Route: 065
     Dates: start: 200805
  9. ALPRAZOLAM [Suspect]
     Active Substance: ALPRAZOLAM
     Indication: Persistent depressive disorder
  10. FEXOFENADINE HYDROCHLORIDE [Suspect]
     Active Substance: FEXOFENADINE HYDROCHLORIDE
     Indication: Headache
     Route: 065
  11. FEXOFENADINE HYDROCHLORIDE [Suspect]
     Active Substance: FEXOFENADINE HYDROCHLORIDE
     Indication: Pain
     Route: 065
     Dates: start: 201003
  12. BACLOFEN [Suspect]
     Active Substance: BACLOFEN
     Indication: Pain
     Route: 065
     Dates: start: 200709
  13. BACLOFEN [Suspect]
     Active Substance: BACLOFEN
     Dosage: 25 MG, TID
     Route: 065
     Dates: start: 200904
  14. BACLOFEN [Suspect]
     Active Substance: BACLOFEN
     Dosage: 25 MG, TID
     Route: 065
     Dates: start: 200805
  15. BACLOFEN [Suspect]
     Active Substance: BACLOFEN
     Dosage: 25 MG, TID
     Route: 065
     Dates: start: 201003
  16. BACLOFEN [Suspect]
     Active Substance: BACLOFEN
     Dosage: 10 MG, QD
     Dates: start: 200709
  17. BACLOFEN [Suspect]
     Active Substance: BACLOFEN
     Dosage: 25 MG QD
     Dates: start: 200904
  18. BACLOFEN [Suspect]
     Active Substance: BACLOFEN
     Dosage: 25 MG, QD
     Dates: start: 201003
  19. CARBAMAZEPINE [Suspect]
     Active Substance: CARBAMAZEPINE
     Indication: Pain
     Dosage: DOSE: 3X200 MG?200 MG, 1 PER DAY
     Route: 065
     Dates: start: 200709
  20. NEUROBION [Suspect]
     Active Substance: CYANOCOBALAMIN\PYRIDOXINE\THIAMINE
     Indication: Pain
     Dosage: 2 X 1 TABLET
     Route: 065
     Dates: start: 200805
  21. RANITIDINE [Suspect]
     Active Substance: RANITIDINE
     Indication: Product used for unknown indication
     Dosage: DOSE: 2X150 MG
     Route: 065
     Dates: start: 200709
  22. DIAZEPAM [Suspect]
     Active Substance: DIAZEPAM
     Indication: Pain
     Dosage: 1 DF, 1/DAY
     Route: 065
     Dates: start: 201003
  23. DIAZEPAM [Suspect]
     Active Substance: DIAZEPAM
     Route: 065
     Dates: start: 200709
  24. DIAZEPAM [Suspect]
     Active Substance: DIAZEPAM
     Dosage: DOSE: 2 MG, 2 MG, 5 MG QD
     Dates: start: 201003
  25. GINKGO [Suspect]
     Active Substance: GINKGO
     Indication: Pain
     Route: 065
     Dates: start: 201003
  26. GINKGO [Suspect]
     Active Substance: GINKGO
     Indication: Rash
  27. GABAPENTIN [Suspect]
     Active Substance: GABAPENTIN
     Indication: Mental disorder
     Dosage: 300 MG TID
     Route: 065
     Dates: start: 200904
  28. GABAPENTIN [Suspect]
     Active Substance: GABAPENTIN
     Indication: Pain
  29. ESOMEPRAZOLE [Suspect]
     Active Substance: ESOMEPRAZOLE
     Indication: Asthenia
     Dosage: 20 MG, BID
     Route: 065
     Dates: start: 201003
  30. PREGABALIN [Suspect]
     Active Substance: PREGABALIN
     Indication: Pain
     Route: 065
     Dates: start: 201003
  31. OXYCODONE [Suspect]
     Active Substance: OXYCODONE
     Indication: Pain
     Dosage: MAR10 10MG PP
     Route: 065
     Dates: start: 200904
  32. OXYCODONE [Suspect]
     Active Substance: OXYCODONE
     Route: 065
     Dates: start: 201003
  33. OXYCODONE [Suspect]
     Active Substance: OXYCODONE
     Dates: start: 201003
  34. OXYCODONE [Suspect]
     Active Substance: OXYCODONE
     Dosage: 10 MG, QD
     Dates: start: 200904
  35. BUPRENORPHINE [Suspect]
     Active Substance: BUPRENORPHINE
     Indication: Bradyphrenia
     Dosage: 70 UG,Q3D
     Route: 065
     Dates: start: 200904
  36. BUPRENORPHINE [Suspect]
     Active Substance: BUPRENORPHINE
     Indication: Pain
  37. SERTRALINE HYDROCHLORIDE [Suspect]
     Active Substance: SERTRALINE HYDROCHLORIDE
     Indication: Pain
     Route: 065
     Dates: start: 200904
  38. SERTRALINE HYDROCHLORIDE [Suspect]
     Active Substance: SERTRALINE HYDROCHLORIDE
     Dosage: 1DF:1 TABLET APR09 50MG
     Route: 065
     Dates: start: 200805
  39. PANTOPRAZOLE [Suspect]
     Active Substance: PANTOPRAZOLE
     Indication: Product used for unknown indication
     Route: 065
     Dates: start: 200904
  40. ACETAMINOPHEN\TRAMADOL HYDROCHLORIDE [Suspect]
     Active Substance: ACETAMINOPHEN\TRAMADOL HYDROCHLORIDE
     Indication: Pain
     Dosage: 1DF:3 TIMES 2 TABLETS(TRAMADOL 37.5MG,PARACETAMOL 325MG)
     Route: 065
     Dates: start: 200709
  41. ACETAMINOPHEN\TRAMADOL HYDROCHLORIDE [Suspect]
     Active Substance: ACETAMINOPHEN\TRAMADOL HYDROCHLORIDE
     Dosage: PP
     Route: 065
     Dates: start: 201003
  42. ACETAMINOPHEN\TRAMADOL HYDROCHLORIDE [Suspect]
     Active Substance: ACETAMINOPHEN\TRAMADOL HYDROCHLORIDE
     Dosage: DOSE: 3X 2 (375/325MG)
     Route: 065
     Dates: start: 200805
  43. ACETAMINOPHEN\TRAMADOL HYDROCHLORIDE [Suspect]
     Active Substance: ACETAMINOPHEN\TRAMADOL HYDROCHLORIDE
     Dosage: 37.5 MG/325MG 2 TABLETS 3 TIMES PER DAY
     Route: 065
     Dates: start: 200904
  44. ACETAMINOPHEN\TRAMADOL HYDROCHLORIDE [Suspect]
     Active Substance: ACETAMINOPHEN\TRAMADOL HYDROCHLORIDE
     Dosage: 37.5 MG/325 MG 2 TABLETS 3 TIMES PER DAY
     Dates: start: 200709
  45. ACETAMINOPHEN\TRAMADOL HYDROCHLORIDE [Suspect]
     Active Substance: ACETAMINOPHEN\TRAMADOL HYDROCHLORIDE
     Dosage: 37.5 MG/325 MG 2 TABLETS 3 TIMES PER DAY
     Dates: start: 200904
  46. SERTRALINE [Suspect]
     Active Substance: SERTRALINE HYDROCHLORIDE
     Indication: Headache
     Route: 065
     Dates: start: 200805
  47. FENTANYL [Suspect]
     Active Substance: FENTANYL
     Indication: Pain
     Route: 062
     Dates: start: 201003
  48. IBUPROFEN [Suspect]
     Active Substance: IBUPROFEN
     Indication: Pain
     Route: 065
     Dates: start: 200703
  49. PIROXICAM [Suspect]
     Active Substance: PIROXICAM
     Indication: Pain
     Route: 065
     Dates: start: 200709
  50. CYANOCOBALAMIN\PYRIDOXINE\RIBOFLAVIN\THIAMINE [Concomitant]
     Active Substance: CYANOCOBALAMIN\PYRIDOXINE\RIBOFLAVIN\THIAMINE
     Indication: Asthenia
     Dosage: 2 X 1 TABLET
     Route: 065
     Dates: start: 200805
  51. ALPRAZOLAM [Concomitant]
     Active Substance: ALPRAZOLAM
     Indication: Persistent depressive disorder
     Route: 065
     Dates: start: 200805
  52. TRAMADOL [Concomitant]
     Active Substance: TRAMADOL
     Indication: Pain
     Dates: start: 200805

REACTIONS (39)
  - Schizophrenia [Unknown]
  - Depression [Unknown]
  - Cognitive disorder [Unknown]
  - Sensory disturbance [Unknown]
  - Confusional state [Unknown]
  - Conversion disorder [Unknown]
  - Neurosis [Unknown]
  - Disturbance in attention [Unknown]
  - Quadriparesis [Unknown]
  - Condition aggravated [Unknown]
  - Asthenia [Unknown]
  - Diplopia [Unknown]
  - Syncope [Unknown]
  - Loss of consciousness [Unknown]
  - Feeling abnormal [Unknown]
  - Pain [Unknown]
  - Rash [Unknown]
  - Nausea [Unknown]
  - Psychomotor skills impaired [Unknown]
  - Musculoskeletal stiffness [Unknown]
  - Oedema [Unknown]
  - Anxiety [Unknown]
  - Sedation [Unknown]
  - Dizziness [Unknown]
  - Constipation [Unknown]
  - Fatigue [Unknown]
  - Pruritus [Unknown]
  - Persistent depressive disorder [Unknown]
  - Euphoric mood [Unknown]
  - Gastrointestinal motility disorder [Unknown]
  - Erythema [Unknown]
  - Vomiting [Unknown]
  - Headache [Unknown]
  - Asthenia [Unknown]
  - Ataxia [Unknown]
  - Asthenia [Unknown]
  - Pain [Unknown]
  - Pain [Unknown]
  - Ill-defined disorder [Unknown]
